FAERS Safety Report 14597102 (Version 1)
Quarter: 2018Q1

REPORT INFORMATION
  Report Type: Spontaneous
  Country: FR (occurrence: FR)
  Receive Date: 20180305
  Receipt Date: 20180305
  Transmission Date: 20180509
  Serious: Yes (Hospitalization)
  Sender: FDA-Public Use
  Company Number: FR-ROCHE-2078060

PATIENT
  Age: 51 Year
  Sex: Female
  Weight: 94 kg

DRUGS (3)
  1. IZALGI [Suspect]
     Active Substance: ACETAMINOPHEN\OPIUM
     Indication: NEURALGIA
     Route: 048
     Dates: start: 20180110
  2. VALIUM [Suspect]
     Active Substance: DIAZEPAM
     Indication: NEURALGIA
     Route: 048
     Dates: start: 20171218
  3. LYRICA [Suspect]
     Active Substance: PREGABALIN
     Indication: NEURALGIA
     Route: 048
     Dates: start: 20171218, end: 20180123

REACTIONS (2)
  - Confusional state [Recovered/Resolved]
  - Asthenia [Unknown]

NARRATIVE: CASE EVENT DATE: 20180101
